FAERS Safety Report 9865466 (Version 2)
Quarter: 2014Q1

REPORT INFORMATION
  Report Type: Spontaneous
  Country: US (occurrence: US)
  Receive Date: 20140203
  Receipt Date: 20140203
  Transmission Date: 20141002
  Serious: No
  Sender: FDA-Public Use
  Company Number: US-ALLERGAN-1308825US

PATIENT
  Age: 70 Year
  Sex: Female

DRUGS (5)
  1. RESTASIS [Suspect]
     Indication: DRY EYE
     Dosage: 2 GTT, BID-QID
     Route: 047
     Dates: start: 200601
  2. CHLORDIAZEPOXIDE [Concomitant]
     Indication: SEDATIVE THERAPY
     Dosage: 10 MG, QD
     Route: 048
  3. PAROXETINE HYDROCHLORIDE [Concomitant]
     Indication: DEPRESSION
     Dosage: 1 N/A, QD
     Route: 048
  4. AMITRIPTYLINE [Concomitant]
     Indication: INSOMNIA
     Dosage: 2 N/A, QHS
     Route: 048
  5. ASA [Concomitant]
     Indication: HYPERTENSION
     Dosage: 1 N/A, BID
     Route: 048

REACTIONS (4)
  - Glaucoma [Not Recovered/Not Resolved]
  - Inappropriate schedule of drug administration [Unknown]
  - Eye discharge [Unknown]
  - Ocular hyperaemia [Unknown]
